FAERS Safety Report 8830059 (Version 2)
Quarter: 2014Q1

REPORT INFORMATION
  Report Type: Spontaneous
  Country: US (occurrence: US)
  Receive Date: 20121008
  Receipt Date: 20140311
  Transmission Date: 20141002
  Serious: No
  Sender: FDA-Public Use
  Company Number: US-PFIZER INC-2012246870

PATIENT
  Age: 72 Year
  Sex: Female
  Weight: 74 kg

DRUGS (2)
  1. NEURONTIN [Suspect]
     Indication: ORTHOSTATIC TREMOR
     Dosage: 800 MG, 1X/DAY
     Route: 048
     Dates: start: 2006
  2. NEURONTIN [Suspect]
     Dosage: 800 MG, 3X/DAY
     Route: 048

REACTIONS (1)
  - Drug ineffective [Unknown]
